FAERS Safety Report 9741541 (Version 4)
Quarter: 2014Q2

REPORT INFORMATION
  Report Type: Report from Study
  Country: EG (occurrence: EG)
  Receive Date: 20131210
  Receipt Date: 20140605
  Transmission Date: 20141212
  Serious: Yes (Hospitalization, Other)
  Sender: FDA-Public Use
  Company Number: EG-ROCHE-1315361

PATIENT
  Age: 74 Year
  Sex: Male
  Weight: 70 kg

DRUGS (4)
  1. PEGASYS [Suspect]
     Indication: HEPATITIS C
     Route: 058
     Dates: start: 20130615, end: 20140521
  2. RIBAVIRIN [Suspect]
     Indication: HEPATITIS C
     Route: 048
     Dates: start: 20130615, end: 20140523
  3. CONCOR 5 [Concomitant]
     Indication: HYPERTENSION
  4. ZESTRIL [Concomitant]
     Indication: HYPERTENSION

REACTIONS (11)
  - Ligament injury [Recovering/Resolving]
  - Platelet count decreased [Not Recovered/Not Resolved]
  - Leukopenia [Unknown]
  - Tachycardia [Recovering/Resolving]
  - Hypersensitivity [Not Recovered/Not Resolved]
  - Joint stiffness [Not Recovered/Not Resolved]
  - Asthenia [Not Recovered/Not Resolved]
  - Fatigue [Not Recovered/Not Resolved]
  - Pyrexia [Recovering/Resolving]
  - Pain in extremity [Unknown]
  - White blood cell count decreased [Not Recovered/Not Resolved]
